FAERS Safety Report 11778949 (Version 1)
Quarter: 2015Q4

REPORT INFORMATION
  Report Type: Other
  Country: US (occurrence: US)
  Receive Date: 20151125
  Receipt Date: 20151125
  Transmission Date: 20160304
  Serious: Yes (Other)
  Sender: FDA-Public Use
  Company Number: US-METHAPHARM INC.-1044657

PATIENT
  Age: 68 Year
  Sex: Female
  Weight: 63.2 kg

DRUGS (5)
  1. STERIOD [Suspect]
     Active Substance: UNSPECIFIED INGREDIENT
     Route: 065
  2. MYCOPHENOLATE MOFETIL. [Suspect]
     Active Substance: MYCOPHENOLATE MOFETIL
     Route: 065
  3. TRANEXAMIC ACID. [Suspect]
     Active Substance: TRANEXAMIC ACID
     Indication: DISSEMINATED INTRAVASCULAR COAGULATION
     Route: 065
  4. ANTI-THYMOCYTE GLOBULIN (RABBIT) NOS [Suspect]
     Active Substance: LAPINE T-LYMPHOCYTE IMMUNE GLOBULIN
     Route: 065
  5. BELATACEPT [Suspect]
     Active Substance: BELATACEPT
     Route: 065

REACTIONS (3)
  - Haemolytic anaemia [Unknown]
  - Thrombocytopenia [Recovered/Resolved]
  - Post procedural complication [None]
